FAERS Safety Report 8323289-5 (Version None)
Quarter: 2012Q2

REPORT INFORMATION
  Report Type: 
  Country: None (occurrence: None)
  Receive Date: 20120430
  Receipt Date: 20120420
  Transmission Date: 20120825
  Serious: Yes (Death, Other)
  Sender: FDA-Public Use
  Company Number: JP-BAXTER-2011BH031975

PATIENT
  Sex: Male

DRUGS (1)
  1. DIANEAL-N PD-2 1.5 PD SOLUTION [Suspect]
     Route: 033

REACTIONS (2)
  - ASTHENIA [None]
  - DEATH [None]
